FAERS Safety Report 4900785-1 (Version None)
Quarter: 2006Q1

REPORT INFORMATION
  Report Type: 
  Country: None (occurrence: None)
  Receive Date: 20060201
  Receipt Date: 20060124
  Transmission Date: 20060701
  Serious: Yes (Death, Hospitalization)
  Sender: FDA-Public Use
  Company Number: 2005JP000617

PATIENT
  Age: 34 Year
  Sex: Male
  Weight: 73 kg

DRUGS (4)
  1. PROGRAF [Suspect]
     Indication: LIVER TRANSPLANT
     Dosage: 0.03 MG/KG, IV DRIP
     Route: 041
     Dates: start: 20041224, end: 20050101
  2. PROGRAF [Suspect]
     Indication: LIVER TRANSPLANT
     Dosage: 0.03 MG/KG, IV DRIP
     Route: 041
     Dates: start: 20050102, end: 20050320
  3. FLORID-F (MICONAZOLE) INJECTION [Concomitant]
  4. CYCLOSPORINE [Concomitant]

REACTIONS (4)
  - BRAIN ABSCESS [None]
  - GASTROINTESTINAL DISORDER [None]
  - PSYCHIATRIC SYMPTOM [None]
  - THERAPY NON-RESPONDER [None]
